FAERS Safety Report 13421620 (Version 1)
Quarter: 2017Q2

REPORT INFORMATION
  Report Type: Spontaneous
  Country: FR (occurrence: FR)
  Receive Date: 20170410
  Receipt Date: 20170410
  Transmission Date: 20170830
  Serious: Yes (Hospitalization, Other)
  Sender: FDA-Public Use
  Company Number: FR-ASTRAZENECA-2017SE36059

PATIENT
  Age: 975 Month
  Sex: Female

DRUGS (7)
  1. LEVOTHYROX [Concomitant]
     Active Substance: LEVOTHYROXINE
  2. PREVISCAN [Concomitant]
     Active Substance: FLUINDIONE
  3. DAFALGAN CODEINE [Concomitant]
     Active Substance: ACETAMINOPHEN\CODEINE PHOSPHATE
  4. BISOPROLOL [Concomitant]
     Active Substance: BISOPROLOL
  5. PANTOPRAZOLE SODIUM. [Concomitant]
     Active Substance: PANTOPRAZOLE SODIUM
  6. ARIMIDEX [Suspect]
     Active Substance: ANASTROZOLE
     Indication: BREAST NEOPLASM
     Route: 048
     Dates: start: 2015, end: 201703
  7. LASILIX [Concomitant]
     Active Substance: FUROSEMIDE

REACTIONS (2)
  - Erysipelas [Unknown]
  - Arthritis [Recovering/Resolving]

NARRATIVE: CASE EVENT DATE: 201701
